FAERS Safety Report 8005394-6 (Version None)
Quarter: 2011Q4

REPORT INFORMATION
  Report Type: 
  Country: None (occurrence: None)
  Receive Date: 20111223
  Receipt Date: 20111216
  Transmission Date: 20120403
  Serious: Yes (Other)
  Sender: FDA-Public Use
  Company Number: US-AMGEN-USASP2011067202

PATIENT
  Age: 61 Year
  Sex: Female

DRUGS (3)
  1. RELPAX [Concomitant]
  2. PROLIA [Suspect]
     Indication: OSTEOPOROSIS POSTMENOPAUSAL
     Dosage: UNK UNK, Q6MO
     Dates: start: 20110615
  3. EXCEDRIN (MIGRAINE) [Concomitant]

REACTIONS (2)
  - PAIN [None]
  - PAIN IN JAW [None]
